FAERS Safety Report 6287749-3 (Version None)
Quarter: 2009Q3

REPORT INFORMATION
  Report Type: 
  Country: None (occurrence: None)
  Receive Date: 20090727
  Receipt Date: 20090727
  Transmission Date: 20100115
  Serious: Yes (Other)
  Sender: FDA-Public Use
  Company Number: None

PATIENT
  Weight: 95.2554 kg

DRUGS (1)
  1. ELECTRONIC CIGARETTE [Suspect]

REACTIONS (1)
  - NO ADVERSE EVENT [None]
